FAERS Safety Report 4475887-7 (Version None)
Quarter: 2004Q4

REPORT INFORMATION
  Report Type: 
  Country: None (occurrence: None)
  Receive Date: 20041012
  Receipt Date: 20040928
  Transmission Date: 20050328
  Serious: Yes (Death)
  Sender: FDA-Public Use
  Company Number: 2004236441US

PATIENT
  Age: 72 Year
  Sex: Male

DRUGS (5)
  1. CELEBREX [Suspect]
     Dosage: 200 MG
     Dates: start: 20000803, end: 20010101
  2. DIGOXIN [Concomitant]
  3. CIMETIDINE [Concomitant]
  4. SKELAXIN [Concomitant]
  5. DORAL [Concomitant]

REACTIONS (1)
  - MYOCARDIAL INFARCTION [None]
